FAERS Safety Report 8871850 (Version 1)
Quarter: 2012Q4

REPORT INFORMATION
  Report Type: 
  Country: US (occurrence: US)
  Receive Date: 20121029
  Receipt Date: 20121029
  Transmission Date: 20130627
  Serious: Yes (Other)
  Sender: FDA-Public Use
  Company Number: PHEH2012US020983

PATIENT
  Sex: Male

DRUGS (8)
  1. TEGRETOL [Suspect]
     Indication: EPILEPSY
     Dosage: 200 mg, BID
     Route: 048
  2. LAMICTAL [Concomitant]
     Dosage: UNK UKN, UNK
  3. DEPAKOTE [Concomitant]
     Dosage: UNK UKN, UNK
  4. ASACOL [Concomitant]
     Dosage: UNK UKN, UNK
  5. VYVANSE [Concomitant]
     Dosage: UNK UKN, UNK
  6. CYMBALTA [Concomitant]
     Dosage: UNK UKN, UNK
  7. SEROQUEL [Concomitant]
     Dosage: UNK UKN, UNK
  8. KLONOPIN [Concomitant]
     Dosage: UNK UKN, UNK

REACTIONS (8)
  - Crohn^s disease [Unknown]
  - Suicidal behaviour [Unknown]
  - Personality change [Unknown]
  - Autism [Unknown]
  - Attention deficit/hyperactivity disorder [Unknown]
  - Depression [Unknown]
  - Speech disorder [Unknown]
  - Epilepsy [Unknown]
